FAERS Safety Report 21598419 (Version 2)
Quarter: 2023Q1

REPORT INFORMATION
  Report Type: Spontaneous
  Country: US (occurrence: US)
  Receive Date: 20221115
  Receipt Date: 20230216
  Transmission Date: 20230417
  Serious: Yes (Other)
  Sender: FDA-Public Use
  Company Number: US-JNJFOC-20221119998

PATIENT
  Age: 42 Year
  Sex: Female
  Weight: 61.290 kg

DRUGS (1)
  1. TREMFYA [Suspect]
     Active Substance: GUSELKUMAB
     Indication: Psoriatic arthropathy
     Route: 065

REACTIONS (5)
  - Psoriatic arthropathy [Unknown]
  - Product dose omission issue [Unknown]
  - Injection site bruising [Unknown]
  - Device malfunction [Unknown]
  - Myalgia [Unknown]

NARRATIVE: CASE EVENT DATE: 20221001
